FAERS Safety Report 4688355-4 (Version None)
Quarter: 2005Q2

REPORT INFORMATION
  Report Type: 
  Country: None (occurrence: None)
  Receive Date: 20050609
  Receipt Date: 20050531
  Transmission Date: 20051028
  Serious: Yes (Hospitalization)
  Sender: FDA-Public Use
  Company Number: THQ2005A00500

PATIENT
  Age: 90 Year
  Sex: Female

DRUGS (5)
  1. ACTOS [Suspect]
     Indication: DIABETES MELLITUS NON-INSULIN-DEPENDENT
     Dosage: 15 MG (1 D) PER ORAL
     Route: 048
     Dates: start: 20040701
  2. COVERSYL (PERINDOPRIL) [Concomitant]
  3. DIAFORMIN (METFORMIN HYDROCHLORIDE) [Concomitant]
  4. COVERSYL PLUS (BI PREDONIUM) [Concomitant]
  5. ATENOLOL [Concomitant]

REACTIONS (3)
  - DIZZINESS [None]
  - HYPOTENSION [None]
  - OEDEMA [None]
